FAERS Safety Report 10223854 (Version 1)
Quarter: 2014Q2

REPORT INFORMATION
  Report Type: Spontaneous
  Country: US (occurrence: US)
  Receive Date: 20140609
  Receipt Date: 20140609
  Transmission Date: 20141212
  Serious: Yes (Other)
  Sender: FDA-Public Use
  Company Number: US-RANBAXY-2014US-81790

PATIENT
  Age: 69 Year
  Sex: Female

DRUGS (1)
  1. ACICLOVIR [Suspect]
     Indication: HERPES ZOSTER
     Route: 065

REACTIONS (5)
  - Mental status changes [Recovering/Resolving]
  - Aphasia [Recovering/Resolving]
  - Hallucination, visual [Recovering/Resolving]
  - Neurotoxicity [Recovering/Resolving]
  - Renal injury [Recovering/Resolving]
